FAERS Safety Report 19303461 (Version 2)
Quarter: 2021Q2

REPORT INFORMATION
  Report Type: Spontaneous
  Country: BE (occurrence: BE)
  Receive Date: 20210525
  Receipt Date: 20210528
  Transmission Date: 20210717
  Serious: Yes (Hospitalization, Other)
  Sender: FDA-Public Use
  Company Number: BE-JNJFOC-20210517563

PATIENT
  Age: 46 Year
  Sex: Female
  Weight: 114 kg

DRUGS (4)
  1. NEO CODION [Concomitant]
     Active Substance: CODEINE\GRINDELIA HIRSUTULA WHOLE\SULFOGAIACOL
  2. DAFALGAN [Concomitant]
     Active Substance: ACETAMINOPHEN
     Indication: ANALGESIC THERAPY
     Dosage: UNK UNK, PRN
  3. RIVAROXABAN [Suspect]
     Active Substance: RIVAROXABAN
     Indication: PULMONARY EMBOLISM
     Dosage: 15 MG, BID
     Route: 048
     Dates: start: 20210415, end: 20210501
  4. ZINNAT [CEFUROXIME SODIUM] [Concomitant]
     Active Substance: CEFUROXIME SODIUM
     Dosage: 500 MG, BID

REACTIONS (5)
  - Haemoglobin decreased [Unknown]
  - Intermenstrual bleeding [Unknown]
  - Loss of consciousness [Unknown]
  - Hypotension [Unknown]
  - Ovarian cyst [Unknown]

NARRATIVE: CASE EVENT DATE: 202104
